FAERS Safety Report 6581563-7 (Version None)
Quarter: 2010Q1

REPORT INFORMATION
  Report Type: 
  Country: None (occurrence: None)
  Receive Date: 20100215
  Receipt Date: 20100204
  Transmission Date: 20100710
  Serious: Yes (Other)
  Sender: FDA-Public Use
  Company Number: US-JNJFOC-20100200588

PATIENT
  Sex: Female

DRUGS (2)
  1. DOXORUBICIN HCL [Suspect]
     Indication: OVARIAN CANCER
     Dosage: CYCLE 5
     Route: 042
  2. DOXORUBICIN HCL [Suspect]
     Dosage: 4 CYCLES
     Route: 042

REACTIONS (5)
  - BRONCHITIS [None]
  - DYSARTHRIA [None]
  - HEARING IMPAIRED [None]
  - INTRAOCULAR PRESSURE INCREASED [None]
  - PALMAR-PLANTAR ERYTHRODYSAESTHESIA SYNDROME [None]
